FAERS Safety Report 17596490 (Version 1)
Quarter: 2020Q1

REPORT INFORMATION
  Report Type: Spontaneous
  Country: MX (occurrence: MX)
  Receive Date: 20200330
  Receipt Date: 20200330
  Transmission Date: 20200409
  Serious: Yes (Other)
  Sender: FDA-Public Use
  Company Number: MX-LUPIN PHARMACEUTICALS INC.-2020-01497

PATIENT
  Age: 75 Year
  Sex: Male

DRUGS (6)
  1. ETHAMBUTOL [Suspect]
     Active Substance: ETHAMBUTOL HYDROCHLORIDE
     Indication: TUBERCULOSIS
     Dosage: UNK
     Route: 065
  2. PYRAZINAMIDE. [Suspect]
     Active Substance: PYRAZINAMIDE
     Indication: TUBERCULOSIS
     Dosage: UNK
     Route: 065
  3. CLARITHROMYCIN. [Suspect]
     Active Substance: CLARITHROMYCIN
     Indication: TUBERCULOSIS
     Dosage: UNK
     Route: 065
  4. GATIFLOXACIN. [Suspect]
     Active Substance: GATIFLOXACIN
     Indication: TUBERCULOSIS
     Dosage: UNK
     Route: 065
  5. AMIKACIN. [Suspect]
     Active Substance: AMIKACIN
     Indication: TUBERCULOSIS
     Dosage: UNK
     Route: 065
  6. RIFAMPIN. [Suspect]
     Active Substance: RIFAMPIN
     Indication: TUBERCULOSIS
     Dosage: UNK
     Route: 065

REACTIONS (1)
  - Drug resistance [Unknown]
